FAERS Safety Report 9130866 (Version 4)
Quarter: 2013Q2

REPORT INFORMATION
  Report Type: Report from Study
  Country: US (occurrence: US)
  Receive Date: 20130301
  Receipt Date: 20130605
  Transmission Date: 20140414
  Serious: Yes (Hospitalization)
  Sender: FDA-Public Use
  Company Number: US-UCBSA-079338

PATIENT
  Age: 20 Year
  Sex: Female
  Weight: 50.3 kg

DRUGS (26)
  1. CIMZIA [Suspect]
     Indication: CROHN^S DISEASE
     Dosage: 200MG/MLX2
     Route: 058
     Dates: start: 20111006
  2. LORTAB [Concomitant]
     Dosage: 7.5-500 MG TABLET; 1 TABLET EVERY 6 HOURS AS NEEDED
     Route: 048
  3. LEVSIN/SL [Concomitant]
     Dosage: 1 TABLET UNDER THE TOINGUE EVERY 4 TO 6 HOURS AS NEEDED
     Route: 060
  4. CELEXA [Concomitant]
  5. DURAGESIC [Concomitant]
     Dosage: PLACE 1 PATCH ON TO THE SKIN EVERY 72 HOURS
  6. ATIVAN [Concomitant]
     Dosage: AS NEEDED
     Route: 048
  7. METHOTREXATE [Concomitant]
     Indication: CROHN^S DISEASE
     Dosage: 2.5 MG TABLET PACK; 10 TABLETS BY MOUTH EVERY WEEK
  8. METHOTREXATE [Concomitant]
     Indication: CROHN^S DISEASE
     Dosage: DISCONTINUE PRIOR TO SURGERY
     Dates: start: 2004, end: 201108
  9. LOESTRIN 24 FE [Concomitant]
     Dosage: ONCE DAILY
     Route: 048
  10. ULTRAM [Concomitant]
     Dosage: AS NEEDED
     Route: 048
  11. AMBIEN [Concomitant]
     Route: 048
  12. CANASA [Concomitant]
     Indication: CROHN^S DISEASE
     Dosage: 1000 MG
     Route: 054
  13. CANASA [Concomitant]
     Indication: CROHN^S DISEASE
     Dosage: 4G/60 ML
  14. CANASA [Concomitant]
     Indication: CROHN^S DISEASE
     Dosage: NEVER ACHIEVED SATISFACTORY RESPONSE
     Dates: start: 200201, end: 2008
  15. CANASA [Concomitant]
     Indication: CROHN^S DISEASE
     Dates: start: 201301
  16. CIPRO [Concomitant]
     Dates: start: 201107, end: 20110801
  17. CIPRO [Concomitant]
  18. CIPRO [Concomitant]
     Dates: start: 201302
  19. FLAGYL [Concomitant]
     Indication: CROHN^S DISEASE
     Dates: start: 200402, end: 200402
  20. FLAGYL [Concomitant]
     Indication: CROHN^S DISEASE
     Dates: start: 200910, end: 200911
  21. FLAGYL [Concomitant]
     Indication: CROHN^S DISEASE
     Dates: start: 201006, end: 201111
  22. FLAGYL [Concomitant]
     Indication: CROHN^S DISEASE
     Dates: start: 201302
  23. PREDNISONE [Concomitant]
     Indication: CROHN^S DISEASE
     Dates: start: 200201, end: 2002
  24. PREDNISONE [Concomitant]
     Indication: CROHN^S DISEASE
     Dates: start: 2002, end: 2002
  25. PREDNISONE [Concomitant]
     Indication: CROHN^S DISEASE
     Dates: start: 20110227, end: 201108
  26. PREDNISONE [Concomitant]
     Indication: CROHN^S DISEASE
     Dates: start: 20121108, end: 201301

REACTIONS (1)
  - Urinary tract infection [Recovered/Resolved]
